FAERS Safety Report 4465212-X (Version None)
Quarter: 2004Q3

REPORT INFORMATION
  Report Type: 
  Country: None (occurrence: None)
  Receive Date: 20040928
  Receipt Date: 20040928
  Transmission Date: 20050211
  Serious: Yes (Other)
  Sender: FDA-Public Use
  Company Number: None

PATIENT
  Age: 35 Year
  Sex: Female

DRUGS (2)
  1. XANAX [Suspect]
     Indication: ANXIETY
     Dosage: 10 MG BID PO
     Route: 048
     Dates: start: 19980101
  2. XANAX [Suspect]
     Indication: DEPRESSION
     Dosage: 10 MG BID PO
     Route: 048
     Dates: start: 19980101

REACTIONS (2)
  - DRUG INEFFECTIVE [None]
  - PHARMACEUTICAL PRODUCT COMPLAINT [None]
